FAERS Safety Report 25353123 (Version 2)
Quarter: 2025Q2

REPORT INFORMATION
  Report Type: Spontaneous
  Country: DE (occurrence: DE)
  Receive Date: 20250523
  Receipt Date: 20250613
  Transmission Date: 20250717
  Serious: Yes (Death, Life-Threatening, Hospitalization)
  Sender: MERCK SHARP & DOHME LLC
  Company Number: DE-009507513-2285772

PATIENT
  Age: 13 Year
  Sex: Female
  Weight: 31 kg

DRUGS (7)
  1. PREVYMIS [Suspect]
     Active Substance: LETERMOVIR
     Indication: Cytomegalovirus infection reactivation
     Route: 042
     Dates: start: 20241116, end: 20241125
  2. METHYLPREDNISOLONE [Concomitant]
     Active Substance: METHYLPREDNISOLONE
     Route: 042
  3. HUMAN CYTOMEGALOVIRUS IMMUNE GLOBULIN [Concomitant]
     Active Substance: HUMAN CYTOMEGALOVIRUS IMMUNE GLOBULIN
     Indication: Cytomegalovirus infection
     Dates: start: 20241125, end: 20241125
  4. POSACONAZOLE [Concomitant]
     Active Substance: POSACONAZOLE
     Indication: Bronchopulmonary aspergillosis
     Route: 042
  5. CASPOFUNGIN [Concomitant]
     Active Substance: CASPOFUNGIN
     Indication: Bronchopulmonary aspergillosis
     Route: 042
     Dates: end: 20241127
  6. LINEZOLID [Concomitant]
     Active Substance: LINEZOLID
     Indication: Bacterial infection
     Route: 042
     Dates: end: 20241127
  7. AVIBACTAM SODIUM\CEFTAZIDIME [Concomitant]
     Active Substance: AVIBACTAM SODIUM\CEFTAZIDIME
     Indication: Bacterial infection
     Route: 042
     Dates: start: 20241124, end: 20241127

REACTIONS (6)
  - Cytomegalovirus viraemia [Fatal]
  - Bronchopulmonary aspergillosis [Fatal]
  - Respiratory failure [Fatal]
  - Drug resistance [Unknown]
  - Pneumonia cytomegaloviral [Fatal]
  - Product use in unapproved indication [Unknown]

NARRATIVE: CASE EVENT DATE: 20241116
